FAERS Safety Report 4432021-7 (Version None)
Quarter: 2004Q3

REPORT INFORMATION
  Report Type: 
  Country: None (occurrence: None)
  Receive Date: 20040818
  Receipt Date: 20040730
  Transmission Date: 20050211
  Serious: Yes (Other)
  Sender: FDA-Public Use
  Company Number: USA040874192

PATIENT
  Age: 16 Year
  Sex: Female
  Weight: 57 kg

DRUGS (1)
  1. STRATTERA [Suspect]
     Dates: start: 20040301

REACTIONS (2)
  - CYSTITIS HAEMORRHAGIC [None]
  - URINARY TRACT INFECTION [None]
